FAERS Safety Report 11944191 (Version 1)
Quarter: 2016Q1

REPORT INFORMATION
  Report Type: Spontaneous
  Country: US (occurrence: US)
  Receive Date: 20160125
  Receipt Date: 20160125
  Transmission Date: 20160526
  Serious: No
  Sender: FDA-Public Use
  Company Number: US-UNITED THERAPEUTICS-UNT-2015-014107

PATIENT
  Age: 68 Year
  Sex: Female
  Weight: 54.79 kg

DRUGS (4)
  1. TYVASO [Suspect]
     Active Substance: TREPROSTINIL
     Dosage: 18-54MICROGRAMS,QID
  2. SILDENAFIL. [Concomitant]
     Active Substance: SILDENAFIL
     Indication: PRODUCT USED FOR UNKNOWN INDICATION
  3. TYVASO [Suspect]
     Active Substance: TREPROSTINIL
     Indication: PULMONARY HYPERTENSION
     Dosage: 6-54 MICROGRAMS, QID
     Dates: start: 20151027, end: 20151113
  4. DILTIAZEM [Concomitant]
     Active Substance: DILTIAZEM
     Indication: PRODUCT USED FOR UNKNOWN INDICATION

REACTIONS (8)
  - Cough [Unknown]
  - Dyspnoea [Unknown]
  - Nervousness [Not Recovered/Not Resolved]
  - Asthenia [Unknown]
  - Headache [Unknown]
  - Palpitations [Unknown]
  - Anxiety [Unknown]
  - Tachycardia [Not Recovered/Not Resolved]

NARRATIVE: CASE EVENT DATE: 20151027
